FAERS Safety Report 5815631-1 (Version None)
Quarter: 2008Q3

REPORT INFORMATION
  Report Type: 
  Country: None (occurrence: None)
  Receive Date: 20080716
  Receipt Date: 20080709
  Transmission Date: 20090109
  Serious: Yes (Other)
  Sender: FDA-Public Use
  Company Number: 2008S1011398

PATIENT
  Age: 18 Year
  Sex: Female

DRUGS (1)
  1. ISOTRETINOIN [Suspect]
     Dosage: 40 MG;DAILY;ORAL
     Route: 048
     Dates: start: 20080215, end: 20080301

REACTIONS (3)
  - DRUG EXPOSURE BEFORE PREGNANCY [None]
  - PREGNANCY [None]
  - TREATMENT NONCOMPLIANCE [None]
